FAERS Safety Report 8189848-8 (Version None)
Quarter: 2012Q1

REPORT INFORMATION
  Report Type: 
  Country: None (occurrence: None)
  Receive Date: 20120307
  Receipt Date: 20111207
  Transmission Date: 20120608
  Serious: No
  Sender: FDA-Public Use
  Company Number: US-GLAXOSMITHKLINE-A0957112A

PATIENT
  Age: 14 Year
  Sex: Female

DRUGS (3)
  1. RESPERIDOL [Concomitant]
     Indication: PSYCHOTIC DISORDER
     Route: 065
     Dates: start: 20101201, end: 20110301
  2. NO CONCURRENT MEDICATION [Concomitant]
  3. ROPINIROLE [Suspect]
     Indication: PSYCHOTIC DISORDER
     Dosage: 1.5MG AT NIGHT
     Route: 048
     Dates: start: 20110301, end: 20110406

REACTIONS (1)
  - DRUG DISPENSING ERROR [None]
